FAERS Safety Report 13485618 (Version 2)
Quarter: 2017Q2

REPORT INFORMATION
  Report Type: Spontaneous
  Country: US (occurrence: US)
  Receive Date: 20170425
  Receipt Date: 20170522
  Transmission Date: 20170830
  Serious: No
  Sender: FDA-Public Use
  Company Number: US-PFIZER INC-2017178709

PATIENT
  Age: 73 Year
  Sex: Female

DRUGS (19)
  1. LEVOTHYROXINE SODIUM. [Concomitant]
     Active Substance: LEVOTHYROXINE SODIUM
     Dosage: 300 UG (4 TABLETS 75UG, ONCE A DAY)
     Route: 048
  2. DIGESTIVE ENZYMES [Concomitant]
     Active Substance: UNSPECIFIED INGREDIENT
     Dosage: 1 DF, BEFORE MEALS THREE TIMES A DAY
     Route: 048
  3. LIOTHYRONINE SODIUM. [Concomitant]
     Active Substance: LIOTHYRONINE SODIUM
     Dosage: 150 UG (6 TABLETS 25 UG EACH), ONCE WEEKLY
     Route: 048
  4. ZOLEDRONIC ACID [Concomitant]
     Active Substance: ZOLEDRONIC ACID
     Dosage: 4 MG SHORT OVER 30 MINUTES IN NORMAL SALINE, 100 ML
     Route: 042
     Dates: start: 20160818, end: 20170503
  5. MILK THISTLE [Concomitant]
     Active Substance: MILK THISTLE
     Dosage: 175 MG, ONCE A DAY
     Route: 048
  6. IBRANCE [Suspect]
     Active Substance: PALBOCICLIB
     Dosage: 100 MG, DAILY
     Route: 048
     Dates: start: 20170331
  7. ASPIRIN. [Concomitant]
     Active Substance: ASPIRIN
     Dosage: UNK
  8. PROCHLORPERAZINE MALEATE. [Concomitant]
     Active Substance: PROCHLORPERAZINE MALEATE
     Dosage: 10 MG, AS DIRECTED
     Route: 048
     Dates: start: 20170314, end: 20170509
  9. ATORVASTATIN CALCIUM. [Concomitant]
     Active Substance: ATORVASTATIN CALCIUM
     Dosage: 20 MG, ONCE A DAY
     Route: 048
  10. RESVERATROL [Concomitant]
     Active Substance: DIETARY SUPPLEMENT\RESVERATROL
     Dosage: 100 MG, TWICE A DAY
     Route: 048
  11. ASPIRIN. [Concomitant]
     Active Substance: ASPIRIN
     Dosage: 81 MG, ONCE A DAY
     Route: 048
  12. ELDERBERRY /01651601/ [Concomitant]
     Dosage: 575 MG/5 ML, ONCE A DAY
     Route: 048
  13. IBRANCE [Suspect]
     Active Substance: PALBOCICLIB
     Dosage: 100 MG, CYCLIC (DAILY FOR 21 DAYS OUT OF 28 DAYS)
     Route: 048
     Dates: start: 20170404, end: 20170430
  14. CONJUGATED LINOLEIC ACID [Concomitant]
     Dosage: 3 DF, 1X/DAY (3 TABLETS ONCE A DAY)
  15. ADVIL [Concomitant]
     Active Substance: IBUPROFEN
     Dosage: UNK
  16. IBRANCE [Suspect]
     Active Substance: PALBOCICLIB
     Indication: BREAST CANCER FEMALE
     Dosage: 100 MG, CYCLIC (DAILY FOR 21 DAYS)
     Route: 048
     Dates: start: 20170309
  17. VITAMIN C [Concomitant]
     Active Substance: ASCORBIC ACID
     Dosage: 500 MG, ONCE A DAY
     Route: 048
     Dates: end: 20170510
  18. HERBALS [Concomitant]
     Active Substance: HERBALS
     Dosage: 1 DF (POWDER), ONCE A DAY
  19. FULVESTRANT [Concomitant]
     Active Substance: FULVESTRANT
     Dosage: 500 MG, ONCE A DAY
     Route: 030
     Dates: start: 20170404, end: 20170503

REACTIONS (1)
  - White blood cell count decreased [Recovered/Resolved]

NARRATIVE: CASE EVENT DATE: 2017
